FAERS Safety Report 20637745 (Version 1)
Quarter: 2022Q1

REPORT INFORMATION
  Report Type: Spontaneous
  Country: US (occurrence: None)
  Receive Date: 20220324
  Receipt Date: 20220324
  Transmission Date: 20220423
  Serious: Yes (Hospitalization, Other)
  Sender: FDA-Public Use
  Company Number: None

PATIENT
  Age: 35 Year
  Sex: Female
  Weight: 76.2 kg

DRUGS (5)
  1. FLUOXETINE [Suspect]
     Active Substance: FLUOXETINE HYDROCHLORIDE
  2. PROGESTERONE [Suspect]
     Active Substance: PROGESTERONE
  3. HUMIRA [Suspect]
     Active Substance: ADALIMUMAB
  4. MESALAMINE [Suspect]
     Active Substance: MESALAMINE
  5. LIALDA [Suspect]
     Active Substance: MESALAMINE

REACTIONS (4)
  - Pre-eclampsia [None]
  - Maternal exposure during pregnancy [None]
  - Foetal exposure during pregnancy [None]
  - Postpartum haemorrhage [None]

NARRATIVE: CASE EVENT DATE: 20210309
